FAERS Safety Report 8546187-0 (Version None)
Quarter: 2012Q3

REPORT INFORMATION
  Report Type: 
  Country: None (occurrence: None)
  Receive Date: 20120727
  Receipt Date: 20120723
  Transmission Date: 20120928
  Serious: Yes (Other)
  Sender: FDA-Public Use
  Company Number: PHHY2012IT064034

PATIENT
  Sex: Female

DRUGS (7)
  1. LEVOFLOXACIN [Interacting]
     Indication: RESPIRATORY TRACT INFECTION
  2. HYDROMORPHINE HYDROCHLORIDE [Interacting]
     Dosage: 16 MG, QD
  3. NADROPARIN [Interacting]
     Dosage: 5700 IU, PER DAY
  4. GLUCOSE [Concomitant]
     Indication: DYSPHAGIA
  5. LEVOFLOXACIN [Suspect]
     Indication: URINARY TRACT INFECTION
     Dosage: 500 MG, BID
     Route: 048
  6. GLYBURIDE AND METFORMIN HYDROCHLORIDE [Interacting]
     Dosage: UNK
     Route: 048
  7. AMINO ACIDS NOS [Concomitant]
     Indication: DYSPHAGIA

REACTIONS (3)
  - UNRESPONSIVE TO STIMULI [None]
  - DRUG INTERACTION [None]
  - HYPOGLYCAEMIA [None]
